FAERS Safety Report 14860618 (Version 2)
Quarter: 2018Q2

REPORT INFORMATION
  Report Type: Spontaneous
  Country: US (occurrence: US)
  Receive Date: 20180508
  Receipt Date: 20180518
  Transmission Date: 20180711
  Serious: No
  Sender: FDA-Public Use
  Company Number: US-GLAXOSMITHKLINE-US2018076101

PATIENT
  Age: 39 Year
  Sex: Female

DRUGS (1)
  1. ABREVA [Suspect]
     Active Substance: DOCOSANOL
     Indication: ORAL HERPES
     Dosage: UNK
     Dates: start: 20180330, end: 20180330

REACTIONS (5)
  - Lip swelling [Unknown]
  - Adverse reaction [Unknown]
  - Oral discomfort [Unknown]
  - Injury [Unknown]
  - Expired product administered [Unknown]

NARRATIVE: CASE EVENT DATE: 20180330
